FAERS Safety Report 4472921-5 (Version None)
Quarter: 2004Q4

REPORT INFORMATION
  Report Type: 
  Country: None (occurrence: None)
  Receive Date: 20041012
  Receipt Date: 20041012
  Transmission Date: 20050328
  Serious: Yes (Hospitalization)
  Sender: FDA-Public Use
  Company Number: None

PATIENT
  Age: 70 Year
  Sex: Male
  Weight: 67.1 kg

DRUGS (1)
  1. AZATHIOPRINE [Suspect]
     Indication: RHEUMATOID ARTHRITIS
     Dosage: 125 MG, 125 MG QD ,ORAL
     Route: 048
     Dates: start: 20030826, end: 20040713

REACTIONS (1)
  - ANAEMIA [None]
